FAERS Safety Report 9767960 (Version 1)
Quarter: 2013Q4

REPORT INFORMATION
  Report Type: Spontaneous
  Country: IT (occurrence: US)
  Receive Date: 20131217
  Receipt Date: 20131217
  Transmission Date: 20140711
  Serious: Yes (Other)
  Sender: FDA-Public Use
  Company Number: IT-SA-2013SA128109

PATIENT
  Sex: 0

DRUGS (1)
  1. LEUKINE [Suspect]
     Indication: LEUKAEMIA
     Route: 065

REACTIONS (2)
  - Blast cells [Recovered/Resolved]
  - Fungal infection [Unknown]
